FAERS Safety Report 10647240 (Version 1)
Quarter: 2014Q4

REPORT INFORMATION
  Report Type: Spontaneous
  Country: AT (occurrence: AT)
  Receive Date: 20141211
  Receipt Date: 20141211
  Transmission Date: 20150529
  Serious: Yes (Hospitalization)
  Sender: FDA-Public Use
  Company Number: AT-MYLANLABS-2014M1013616

PATIENT

DRUGS (8)
  1. AMOXICILLIN W/CLAVULANIC ACID [Suspect]
     Active Substance: AMOXICILLIN\CLAVULANIC ACID
     Indication: PNEUMONIA
     Route: 048
  2. CLARITHROMYCIN. [Suspect]
     Active Substance: CLARITHROMYCIN
     Indication: PNEUMONIA
     Route: 065
  3. AMPICILLIN [Suspect]
     Active Substance: AMPICILLIN
     Indication: PNEUMONIA
     Route: 065
  4. PERFALGAN [Suspect]
     Active Substance: ACETAMINOPHEN
     Indication: PYREXIA
     Dosage: AS NEEDED
     Route: 042
  5. DICLOFENAC [Suspect]
     Active Substance: DICLOFENAC
     Indication: PNEUMONIA
     Dosage: ADMINISTERED AS NEEDED
     Route: 065
  6. ACETYLCYSTEINE. [Suspect]
     Active Substance: ACETYLCYSTEINE
     Indication: PNEUMONIA
     Route: 048
  7. NOVALGIN [Suspect]
     Active Substance: METAMIZOLE SODIUM
     Indication: PNEUMONIA
     Dosage: ADMINISTERED AS NEEDED
     Route: 065
  8. CEFUROXIME. [Suspect]
     Active Substance: CEFUROXIME
     Indication: PNEUMONIA
     Route: 042

REACTIONS (1)
  - Stevens-Johnson syndrome [Recovering/Resolving]
